FAERS Safety Report 4863938-7 (Version None)
Quarter: 2005Q4

REPORT INFORMATION
  Report Type: 
  Country: None (occurrence: None)
  Receive Date: 20051219
  Receipt Date: 20051212
  Transmission Date: 20060501
  Serious: No
  Sender: FDA-Public Use
  Company Number: 2005-135666-NL

PATIENT
  Sex: 0

DRUGS (3)
  1. MIRTAZAPINE [Suspect]
     Dosage: 45 MG/30 MG ORAL
     Route: 048
  2. AMITRIPTYLINE [Concomitant]
  3. TRAMADOL HCL [Concomitant]

REACTIONS (2)
  - DYSGEUSIA [None]
  - EPILEPSY [None]
